FAERS Safety Report 16929476 (Version 2)
Quarter: 2019Q4

REPORT INFORMATION
  Report Type: Spontaneous
  Country: CN (occurrence: CN)
  Receive Date: 20191017
  Receipt Date: 20191029
  Transmission Date: 20200122
  Serious: Yes (Life-Threatening, Other)
  Sender: FDA-Public Use
  Company Number: CN-ALKEM LABORATORIES LIMITED-CN-ALKEM-2019-08768

PATIENT
  Age: 36 Year
  Sex: Female

DRUGS (15)
  1. AMPHOTERICIN B. [Suspect]
     Active Substance: AMPHOTERICIN B
     Indication: ANTIFUNGAL TREATMENT
  2. VINORELBINE [Concomitant]
     Active Substance: VINORELBINE TARTRATE
     Indication: CHEMOTHERAPY
     Dosage: 40 MILLIGRAM ON DAYS 4 AND 11
     Route: 065
  3. CYTARABINE. [Concomitant]
     Active Substance: CYTARABINE
     Indication: CHEMOTHERAPY
     Dosage: 200 MILLIGRAM ON DAYS 1-7
     Route: 065
  4. ITRACONAZOLE. [Suspect]
     Active Substance: ITRACONAZOLE
     Indication: FUNGAL INFECTION
     Dosage: 200 MILLIGRAM
     Route: 042
  5. ITRACONAZOLE. [Suspect]
     Active Substance: ITRACONAZOLE
     Dosage: 400 MILLIGRAM
     Route: 065
  6. AMPHOTERICIN B. [Suspect]
     Active Substance: AMPHOTERICIN B
     Indication: ASPERGILLUS INFECTION
     Dosage: 0.65 MILLIGRAM/KILOGRAM, QD
     Route: 065
  7. DEXAMETHASONE. [Concomitant]
     Active Substance: DEXAMETHASONE
     Indication: PROPHYLAXIS
     Dosage: 1 MILLIGRAM
     Route: 065
  8. DEXAMETHASONE. [Concomitant]
     Active Substance: DEXAMETHASONE
     Indication: CHEMOTHERAPY
     Dosage: 40 MILLIGRAM ON DAYS 1-4 AND DAYS 11-14
     Route: 065
  9. MITOXANTRONE [Concomitant]
     Active Substance: MITOXANTRONE HYDROCHLORIDE
     Indication: CHEMOTHERAPY
     Dosage: 8 MILLIGRAM ON DAYS 1-3
     Route: 065
  10. DOXORUBICIN [Concomitant]
     Active Substance: DOXORUBICIN
     Indication: CHEMOTHERAPY
     Dosage: 80 MILLIGRAM ON DAY 4
     Route: 065
  11. ITRACONAZOLE. [Suspect]
     Active Substance: ITRACONAZOLE
     Indication: ANTIFUNGAL TREATMENT
     Dosage: 100 MILLIGRAM
     Route: 042
  12. ITRACONAZOLE. [Suspect]
     Active Substance: ITRACONAZOLE
     Dosage: 40 MILLIGRAM
     Route: 042
  13. DEXAMETHASONE. [Concomitant]
     Active Substance: DEXAMETHASONE
     Indication: ADVERSE EVENT
     Dosage: 15 MILLIGRAM ON DAYS 1-15
     Route: 065
  14. L-ASPARAGINASE [Concomitant]
     Active Substance: ASPARAGINASE
     Indication: CHEMOTHERAPY
     Dosage: ON DAYS 8-17
     Route: 065
  15. CYCLOPHOSPHAMIDE. [Concomitant]
     Active Substance: CYCLOPHOSPHAMIDE
     Indication: CHEMOTHERAPY
     Dosage: 1 GRAM ON DAYS 1-3
     Route: 065

REACTIONS (5)
  - Hypotension [Recovered/Resolved]
  - Neutropenia [Recovered/Resolved]
  - Anaphylactic shock [Recovered/Resolved]
  - Hypoxia [Recovered/Resolved]
  - Shock [Recovered/Resolved]
